FAERS Safety Report 4796513-3 (Version None)
Quarter: 2005Q4

REPORT INFORMATION
  Report Type: 
  Country: None (occurrence: None)
  Receive Date: 20051011
  Receipt Date: 20050315
  Transmission Date: 20060501
  Serious: Yes (Hospitalization)
  Sender: FDA-Public Use
  Company Number: 2005-BP-04318BP

PATIENT
  Sex: Female

DRUGS (1)
  1. CATAPRES [Suspect]
     Dosage: TO
     Route: 061
     Dates: start: 20030101, end: 20040601

REACTIONS (2)
  - CEREBROVASCULAR ACCIDENT [None]
  - RASH [None]
